FAERS Safety Report 8242326-X (Version None)
Quarter: 2012Q1

REPORT INFORMATION
  Report Type: 
  Country: None (occurrence: None)
  Receive Date: 20120314
  Receipt Date: 20101020
  Transmission Date: 20120608
  Serious: Yes (Hospitalization)
  Sender: FDA-Public Use
  Company Number: PHHY2010US71448

PATIENT
  Age: 32 Year
  Sex: Male
  Weight: 136 kg

DRUGS (1)
  1. FANAPT [Suspect]
     Indication: SCHIZOPHRENIA
     Dosage: TWICE DAILY (BID), ORAL
     Route: 048

REACTIONS (1)
  - OEDEMA [None]
